FAERS Safety Report 19651965 (Version 1)
Quarter: 2021Q3

REPORT INFORMATION
  Report Type: Report from Study
  Country: EG (occurrence: EG)
  Receive Date: 20210803
  Receipt Date: 20210803
  Transmission Date: 20211014
  Serious: Yes (Other)
  Sender: FDA-Public Use
  Company Number: NVSC2021EG173025

PATIENT
  Age: 29 Year
  Sex: Female

DRUGS (4)
  1. VITAMINS [Concomitant]
     Active Substance: VITAMINS
     Indication: PRODUCT USED FOR UNKNOWN INDICATION
     Route: 065
  2. GILENYA [Suspect]
     Active Substance: FINGOLIMOD HYDROCHLORIDE
     Indication: MULTIPLE SCLEROSIS
     Dosage: 0.5 MG, QD
     Route: 048
     Dates: start: 202006, end: 202012
  3. GILENYA [Suspect]
     Active Substance: FINGOLIMOD HYDROCHLORIDE
     Dosage: 0.5 MG, Q48H, (EVERY OTHER DAY)
     Route: 048
     Dates: start: 202012, end: 20210113
  4. GILENYA [Suspect]
     Active Substance: FINGOLIMOD HYDROCHLORIDE
     Dosage: 0.5 MG, Q48H, (EVERY OTHER DAY)
     Route: 048
     Dates: start: 202102, end: 20210413

REACTIONS (7)
  - Hypoaesthesia [Recovered/Resolved]
  - Eye disorder [Recovered/Resolved]
  - Hepatic enzyme increased [Recovered/Resolved]
  - Heart rate irregular [Recovered/Resolved]
  - Multiple sclerosis relapse [Recovered/Resolved]
  - Off label use [Recovered/Resolved]
  - Limb deformity [Recovered/Resolved]

NARRATIVE: CASE EVENT DATE: 202101
